FAERS Safety Report 25585724 (Version 1)
Quarter: 2025Q3

REPORT INFORMATION
  Report Type: Spontaneous
  Country: MX (occurrence: MX)
  Receive Date: 20250721
  Receipt Date: 20250721
  Transmission Date: 20251020
  Serious: Yes (Other)
  Sender: ROCHE
  Company Number: MX-ROCHE-10000341676

PATIENT
  Age: 38 Year
  Sex: Female
  Weight: 89 kg

DRUGS (1)
  1. RITUXIMAB [Suspect]
     Active Substance: RITUXIMAB
     Indication: Multiple sclerosis
     Dosage: LATEST DOSE: JAN-2025
     Route: 042
     Dates: start: 202310

REACTIONS (2)
  - Off label use [Unknown]
  - Papilloma viral infection [Not Recovered/Not Resolved]

NARRATIVE: CASE EVENT DATE: 20231001
